FAERS Safety Report 11531158 (Version 1)
Quarter: 2015Q3

REPORT INFORMATION
  Report Type: Spontaneous
  Country: US (occurrence: US)
  Receive Date: 20150903
  Receipt Date: 20150903
  Transmission Date: 20151125
  Serious: No
  Sender: FDA-Public Use
  Company Number: US-ELI_LILLY_AND_COMPANY-US201306001889

PATIENT
  Sex: Male
  Weight: 110 kg

DRUGS (3)
  1. CYMBALTA [Suspect]
     Active Substance: DULOXETINE HYDROCHLORIDE
     Indication: BACK PAIN
     Dosage: 30 MG, QD
  2. CYMBALTA [Suspect]
     Active Substance: DULOXETINE HYDROCHLORIDE
     Indication: DEPRESSION
     Dosage: 60 MG, QD
     Route: 048
     Dates: start: 20130215
  3. AMBIEN [Concomitant]
     Active Substance: ZOLPIDEM TARTRATE

REACTIONS (6)
  - Amnesia [Unknown]
  - Fall [Recovered/Resolved]
  - Fatigue [Unknown]
  - Balance disorder [Recovered/Resolved]
  - Gait disturbance [Recovered/Resolved]
  - Somnolence [Recovered/Resolved]
